FAERS Safety Report 17852363 (Version 2)
Quarter: 2020Q2

REPORT INFORMATION
  Report Type: Spontaneous
  Country: US (occurrence: US)
  Receive Date: 20200602
  Receipt Date: 20200621
  Transmission Date: 20200714
  Serious: No
  Sender: FDA-Public Use
  Company Number: US-ASTRAZENECA-2020SE70282

PATIENT
  Age: 25435 Day
  Sex: Female
  Weight: 66.2 kg

DRUGS (3)
  1. HUMALOG [Concomitant]
     Active Substance: INSULIN LISPRO
     Indication: DIABETES MELLITUS
     Route: 058
     Dates: start: 2017
  2. BYDUREON BCISE [Suspect]
     Active Substance: EXENATIDE
     Indication: GLYCOSYLATED HAEMOGLOBIN
     Route: 058
     Dates: start: 2019
  3. TRESIBA [Concomitant]
     Active Substance: INSULIN DEGLUDEC
     Indication: DIABETES MELLITUS
     Route: 058
     Dates: start: 2017

REACTIONS (3)
  - Drug delivery system issue [Unknown]
  - Injection site haemorrhage [Unknown]
  - Injury associated with device [Unknown]

NARRATIVE: CASE EVENT DATE: 20200526
